FAERS Safety Report 12955759 (Version 1)
Quarter: 2016Q4

REPORT INFORMATION
  Report Type: Spontaneous
  Country: US (occurrence: US)
  Receive Date: 20161118
  Receipt Date: 20161118
  Transmission Date: 20170207
  Serious: No
  Sender: FDA-Public Use
  Company Number: US-GLAXOSMITHKLINE-US2016170205

PATIENT
  Sex: Female

DRUGS (1)
  1. VERAMYST [Suspect]
     Active Substance: FLUTICASONE FUROATE
     Indication: MULTIPLE ALLERGIES
     Dosage: UNK
     Route: 045

REACTIONS (5)
  - Therapeutic response decreased [Unknown]
  - Cough [Unknown]
  - Rhinorrhoea [Unknown]
  - Product cleaning inadequate [Unknown]
  - Device use error [Unknown]
